FAERS Safety Report 25432751 (Version 1)
Quarter: 2025Q2

REPORT INFORMATION
  Report Type: Spontaneous
  Country: US (occurrence: US)
  Receive Date: 20250613
  Receipt Date: 20250613
  Transmission Date: 20250717
  Serious: No
  Sender: RECKITT BENCKISER
  Company Number: CN-RECKITT BENCKISER HEALTHCARE INT LIMITED-RB-084500-2024

PATIENT
  Sex: Female

DRUGS (1)
  1. MUCINEX DM [Suspect]
     Active Substance: DEXTROMETHORPHAN HYDROBROMIDE\GUAIFENESIN
     Indication: Cough
     Dosage: TWO TABLETS: ONE IN THE MORNING AND ONE IN THE NIGHT
     Route: 065
     Dates: start: 20240127

REACTIONS (2)
  - Abdominal discomfort [Not Recovered/Not Resolved]
  - Cough [Not Recovered/Not Resolved]

NARRATIVE: CASE EVENT DATE: 20240129
